FAERS Safety Report 4724372-3 (Version None)
Quarter: 2005Q3

REPORT INFORMATION
  Report Type: 
  Country: None (occurrence: None)
  Receive Date: 20050720
  Receipt Date: 20050720
  Transmission Date: 20060218
  Serious: Yes (Other)
  Sender: FDA-Public Use
  Company Number: None

PATIENT
  Age: 47 Year
  Sex: Female
  Weight: 60 kg

DRUGS (1)
  1. ISOVUE [Suspect]
     Indication: SCAN WITH CONTRAST
     Dosage: UNKNOWN DOSE X 1 DOSE IV
     Route: 042
     Dates: start: 20050404

REACTIONS (3)
  - BLOOD PRESSURE SYSTOLIC INCREASED [None]
  - CHEST PAIN [None]
  - RESPIRATORY RATE INCREASED [None]
